FAERS Safety Report 10009363 (Version 2)
Quarter: 2014Q1

REPORT INFORMATION
  Report Type: Spontaneous
  Country: US (occurrence: US)
  Receive Date: 20140313
  Receipt Date: 20140313
  Transmission Date: 20141002
  Serious: Yes (Other)
  Sender: FDA-Public Use
  Company Number: US-INCYTE CORPORATION-2012IN001082

PATIENT
  Age: 63 Year
  Sex: Female
  Weight: 62.59 kg

DRUGS (4)
  1. JAKAFI [Suspect]
     Indication: MYELOFIBROSIS
     Dosage: 10 MG, BID
     Route: 048
     Dates: start: 20120606, end: 2012
  2. JAKAFI [Suspect]
     Dosage: 10 MG, BID
     Route: 048
     Dates: start: 2012
  3. PROMETHAZINE [Concomitant]
  4. AGRYLIN [Concomitant]

REACTIONS (2)
  - Haemoglobin decreased [Recovered/Resolved]
  - Feeling hot [Unknown]
